FAERS Safety Report 15664280 (Version 1)
Quarter: 2018Q4

REPORT INFORMATION
  Report Type: Spontaneous
  Country: US (occurrence: US)
  Receive Date: 20181127
  Receipt Date: 20181127
  Transmission Date: 20190205
  Serious: Yes (Other)
  Sender: FDA-Public Use
  Company Number: None

PATIENT
  Age: 58 Year
  Sex: Male
  Weight: 94.5 kg

DRUGS (1)
  1. GLIPIZIDE 5MG FROM APOTEX [Suspect]
     Active Substance: GLIPIZIDE
     Indication: DIABETES MELLITUS
     Dosage: ?          QUANTITY:1 TABLET(S);?
     Route: 048
     Dates: start: 20181024, end: 20181127

REACTIONS (4)
  - Drug ineffective [None]
  - Diabetes mellitus inadequate control [None]
  - Blood glucose increased [None]
  - Product substitution issue [None]

NARRATIVE: CASE EVENT DATE: 20181024
